FAERS Safety Report 16740331 (Version 1)
Quarter: 2019Q3

REPORT INFORMATION
  Report Type: Spontaneous
  Country: US (occurrence: US)
  Receive Date: 20190709
  Receipt Date: 20190709
  Transmission Date: 20191005
  Serious: No
  Sender: FDA-Public Use
  Company Number: None

PATIENT
  Age: 28 Year
  Sex: Female

DRUGS (15)
  1. DOXYCYCLINE. [Concomitant]
     Active Substance: DOXYCYCLINE
  2. MENOFUR [Concomitant]
  3. PROGESTERPM IN OIL [Concomitant]
  4. FOLLISTIM [Suspect]
     Active Substance: FOLLITROPIN
     Dosage: ?          OTHER DOSE:150 UNITS;?
     Route: 058
     Dates: start: 20190503
  5. NOVAREL [Concomitant]
     Active Substance: CHORIOGONADOTROPIN ALFA
  6. OVIDREL [Concomitant]
     Active Substance: CHORIOGONADOTROPIN ALFA
  7. LETROZOLE. [Concomitant]
     Active Substance: LETROZOLE
  8. ESTRADIOL. [Concomitant]
     Active Substance: ESTRADIOL
  9. GANIRELIX 250MCG ORGANON USA INC [Suspect]
     Active Substance: GANIRELIX
     Indication: INFERTILITY
     Route: 058
     Dates: start: 20190503
  10. TRAMADOL. [Concomitant]
     Active Substance: TRAMADOL
  11. CLOMIPHENE [Concomitant]
     Active Substance: CLOMIPHENE
  12. AMOXICILLIN. [Concomitant]
     Active Substance: AMOXICILLIN
  13. IBUPROFEN. [Concomitant]
     Active Substance: IBUPROFEN
  14. ENDOMETRIN [Concomitant]
     Active Substance: PROGESTERONE
  15. HCG [Concomitant]
     Active Substance: GONADOTROPHIN, CHORIONIC

REACTIONS (1)
  - Rash [None]

NARRATIVE: CASE EVENT DATE: 20190701
